FAERS Safety Report 26093610 (Version 1)
Quarter: 2025Q4

REPORT INFORMATION
  Report Type: Spontaneous
  Country: CO (occurrence: CO)
  Receive Date: 20251126
  Receipt Date: 20251126
  Transmission Date: 20260118
  Serious: Yes (Other)
  Sender: GUERBET
  Company Number: CO-GUERBET/INVERSIONES AJOVECO-CO-20250040

PATIENT
  Age: 34 Year
  Sex: Male
  Weight: 54 kg

DRUGS (4)
  1. IOBITRIDOL [Suspect]
     Active Substance: IOBITRIDOL
     Indication: Computerised tomogram thorax
     Route: 042
     Dates: start: 20251010, end: 20251010
  2. IOBITRIDOL [Suspect]
     Active Substance: IOBITRIDOL
     Indication: Computerised tomogram abdomen
  3. MD GASTROVIEW [Suspect]
     Active Substance: DIATRIZOATE MEGLUMINE\DIATRIZOATE SODIUM
     Indication: Product used for unknown indication
     Dosage: DILUTED IN 1 LITRE OF WATER
     Route: 048
     Dates: start: 20251010, end: 20251010
  4. dipyrone sodium [Concomitant]
     Indication: Pain
     Dosage: 1G/2ML
     Route: 042

REACTIONS (3)
  - Contrast media allergy [Recovered/Resolved]
  - Blood pressure systolic increased [Recovered/Resolved]
  - Heart rate increased [Recovered/Resolved]

NARRATIVE: CASE EVENT DATE: 20251010
